FAERS Safety Report 8303093-4 (Version None)
Quarter: 2012Q2

REPORT INFORMATION
  Report Type: 
  Country: None (occurrence: None)
  Receive Date: 20120423
  Receipt Date: 20120411
  Transmission Date: 20120825
  Serious: Yes (Other)
  Sender: FDA-Public Use
  Company Number: CH-AMGEN-CHESP2012023450

PATIENT
  Age: 44 Year
  Sex: Male

DRUGS (6)
  1. HUMIRA [Suspect]
     Indication: ANKYLOSING SPONDYLITIS
     Dosage: 40 MG, 1 PER 15 DAYS
     Route: 058
     Dates: start: 20100315, end: 20100825
  2. ENBREL [Suspect]
     Indication: ANKYLOSING SPONDYLITIS
     Dosage: 50 MG, WEEKLY
     Route: 058
     Dates: start: 20100825, end: 20110901
  3. SIMPONI [Concomitant]
     Indication: ANKYLOSING SPONDYLITIS
     Dosage: 50 MG, MONTHLY
     Route: 058
     Dates: start: 20110901
  4. ATORVASTATIN CALCIUM [Concomitant]
     Indication: HYPERLIPIDAEMIA
     Dosage: 10 MG, 1X/DAY
     Route: 048
  5. ARCOXIA [Concomitant]
     Indication: ANKYLOSING SPONDYLITIS
     Dosage: 120 MG, 1X/DAY
     Route: 048
     Dates: start: 20100316
  6. ARAVA [Concomitant]
     Indication: PSORIATIC ARTHROPATHY
     Dosage: UNK
     Route: 048
     Dates: start: 20100531, end: 20100825

REACTIONS (1)
  - ALOPECIA UNIVERSALIS [None]
